FAERS Safety Report 5530715-3 (Version None)
Quarter: 2007Q4

REPORT INFORMATION
  Report Type: 
  Country: None (occurrence: None)
  Receive Date: 20071130
  Receipt Date: 20071119
  Transmission Date: 20080405
  Serious: Yes (Life-Threatening, Hospitalization)
  Sender: FDA-Public Use
  Company Number: FR-ELI_LILLY_AND_COMPANY-FR200707002367

PATIENT
  Age: 73 Year
  Sex: Female

DRUGS (8)
  1. FORTEO [Suspect]
     Indication: OSTEOPOROSIS
     Dosage: 20 UG, DAILY (1/D)
     Route: 058
     Dates: start: 20070601, end: 20070628
  2. DURAGESIC-100 [Concomitant]
  3. CACIT D3 [Concomitant]
  4. VALSARTAN AND HYDROCHLOROTHIAZIDE [Concomitant]
  5. FELODIPINE [Concomitant]
  6. BUFLOMEDIL [Concomitant]
  7. TEMERIT  /01339101/ [Concomitant]
  8. GABACET [Concomitant]

REACTIONS (2)
  - MYOCARDIAL INFARCTION [None]
  - NAUSEA [None]
